FAERS Safety Report 23229309 (Version 1)
Quarter: 2023Q4

REPORT INFORMATION
  Report Type: Report from Study
  Country: US (occurrence: US)
  Receive Date: 20231127
  Receipt Date: 20231127
  Transmission Date: 20240109
  Serious: Yes (Other)
  Sender: FDA-Public Use
  Company Number: US-ABBVIE-5509548

PATIENT
  Sex: Female

DRUGS (3)
  1. RINVOQ [Suspect]
     Active Substance: UPADACITINIB
     Indication: Rheumatoid arthritis
     Dosage: FORM STRENGTH: 15 MILLIGRAMS
     Route: 048
     Dates: start: 202212, end: 2023
  2. RINVOQ [Suspect]
     Active Substance: UPADACITINIB
     Indication: Rheumatoid arthritis
     Route: 048
     Dates: start: 2023
  3. LISINOPRIL [Suspect]
     Active Substance: LISINOPRIL
     Indication: Product used for unknown indication
     Route: 065

REACTIONS (9)
  - Limb operation [Unknown]
  - Back pain [Unknown]
  - Spinal cord compression [Unknown]
  - Angioedema [Unknown]
  - Lip swelling [Recovered/Resolved]
  - Peripheral swelling [Unknown]
  - Muscle strain [Unknown]
  - Arthralgia [Unknown]
  - Groin pain [Unknown]

NARRATIVE: CASE EVENT DATE: 20230101
